FAERS Safety Report 23167631 (Version 1)
Quarter: 2023Q4

REPORT INFORMATION
  Report Type: Spontaneous
  Country: US (occurrence: US)
  Receive Date: 20231109
  Receipt Date: 20231109
  Transmission Date: 20240109
  Serious: No
  Sender: FDA-Public Use
  Company Number: US-SA-SAC20231101000677

PATIENT
  Age: 79 Year
  Sex: Male

DRUGS (2)
  1. DUPIXENT [Suspect]
     Active Substance: DUPILUMAB
     Indication: Drainage
     Dosage: 300 MG/2ML QOW
     Route: 058
     Dates: start: 202309, end: 20231016
  2. DUPIXENT [Suspect]
     Active Substance: DUPILUMAB
     Indication: Sinus disorder

REACTIONS (2)
  - Headache [Recovering/Resolving]
  - Product use in unapproved indication [Unknown]

NARRATIVE: CASE EVENT DATE: 20230901
